FAERS Safety Report 17542744 (Version 2)
Quarter: 2020Q1

REPORT INFORMATION
  Report Type: Spontaneous
  Country: NO (occurrence: NO)
  Receive Date: 20200315
  Receipt Date: 20200323
  Transmission Date: 20200409
  Serious: Yes (Death, Hospitalization, Other)
  Sender: FDA-Public Use
  Company Number: NVSC2020NO069583

PATIENT
  Age: 72 Year
  Sex: Male
  Weight: 78 kg

DRUGS (4)
  1. DABRAFENIB [Suspect]
     Active Substance: DABRAFENIB
     Dosage: UNK
     Route: 065
     Dates: end: 20180608
  2. TRAMETINIB [Suspect]
     Active Substance: TRAMETINIB
     Dosage: UNK
     Route: 065
     Dates: end: 20180608
  3. DABRAFENIB [Suspect]
     Active Substance: DABRAFENIB
     Indication: MALIGNANT MELANOMA
     Dosage: UNK
     Route: 065
     Dates: end: 20171211
  4. TRAMETINIB [Suspect]
     Active Substance: TRAMETINIB
     Indication: MALIGNANT MELANOMA
     Dosage: UNK
     Route: 065
     Dates: end: 20171211

REACTIONS (7)
  - Renal cancer metastatic [Fatal]
  - Malignant melanoma [Fatal]
  - Atrial flutter [Fatal]
  - Atrial fibrillation [Fatal]
  - Renal cancer [Unknown]
  - Malignant neoplasm progression [Fatal]
  - Nephritis [Unknown]

NARRATIVE: CASE EVENT DATE: 2000
